FAERS Safety Report 9262044 (Version 1)
Quarter: 2013Q2

REPORT INFORMATION
  Report Type: Spontaneous
  Country: US (occurrence: US)
  Receive Date: 20130429
  Receipt Date: 20130429
  Transmission Date: 20140414
  Serious: No
  Sender: FDA-Public Use
  Company Number: US-009507513-1304USA016879

PATIENT
  Age: 21 Year
  Sex: Female

DRUGS (1)
  1. MIRALAX [Suspect]
     Indication: BOWEL PREPARATION
     Dosage: UNK, ONCE
     Route: 048
     Dates: start: 20130416

REACTIONS (2)
  - Overdose [Unknown]
  - Off label use [Not Recovered/Not Resolved]
